FAERS Safety Report 18271835 (Version 1)
Quarter: 2020Q3

REPORT INFORMATION
  Report Type: Spontaneous
  Country: US (occurrence: US)
  Receive Date: 20200915
  Receipt Date: 20200915
  Transmission Date: 20201103
  Serious: Yes (Death, Hospitalization)
  Sender: FDA-Public Use
  Company Number: None

PATIENT
  Age: 75 Year
  Sex: Male

DRUGS (8)
  1. DIURETIC [Concomitant]
     Active Substance: UNSPECIFIED INGREDIENT
  2. POTASSIUM [Concomitant]
     Active Substance: POTASSIUM
  3. METOPROLOL. [Concomitant]
     Active Substance: METOPROLOL
  4. DIGOXIN. [Concomitant]
     Active Substance: DIGOXIN
  5. SILDENAFIL. [Concomitant]
     Active Substance: SILDENAFIL
  6. TASIGNA [Suspect]
     Active Substance: NILOTINIB
     Indication: CHRONIC MYELOID LEUKAEMIA
     Dosage: ?          QUANTITY:2 CAPSULE(S);?
     Route: 048
  7. WARFARIN [Concomitant]
     Active Substance: WARFARIN
  8. FLOMAX [Concomitant]
     Active Substance: TAMSULOSIN HYDROCHLORIDE

REACTIONS (1)
  - Pulmonary hypertension [None]
